FAERS Safety Report 24552173 (Version 1)
Quarter: 2024Q4

REPORT INFORMATION
  Report Type: Spontaneous
  Country: DE (occurrence: DE)
  Receive Date: 20241026
  Receipt Date: 20241026
  Transmission Date: 20250114
  Serious: Yes (Death, Other)
  Sender: PIRAMAL
  Company Number: DE-DCGMA-24204074

PATIENT

DRUGS (2)
  1. ISOFLURANE [Suspect]
     Active Substance: ISOFLURANE
     Indication: Sedation
     Dosage: APPLICATION P.I., DOSAGE MAC 0.5
  2. PROPOFOL [Suspect]
     Active Substance: PROPOFOL
     Indication: Product used for unknown indication
     Dosage: 2-6 MG/KG/H
     Route: 042

REACTIONS (11)
  - Hypercapnia [Fatal]
  - Hyperkalaemia [Fatal]
  - Blood creatine phosphokinase increased [Fatal]
  - Blood creatine phosphokinase MB increased [Fatal]
  - Myoglobin blood increased [Fatal]
  - Troponin T increased [Fatal]
  - Blood lactate dehydrogenase increased [Fatal]
  - Aspartate aminotransferase increased [Fatal]
  - Rhabdomyolysis [Fatal]
  - Hyperthermia malignant [Fatal]
  - Product use in unapproved indication [Unknown]

NARRATIVE: CASE EVENT DATE: 20240926
